FAERS Safety Report 9797016 (Version 1)
Quarter: 2014Q1

REPORT INFORMATION
  Report Type: Report from Study
  Country: US (occurrence: US)
  Receive Date: 20140105
  Receipt Date: 20140105
  Transmission Date: 20141002
  Serious: Yes (Death)
  Sender: FDA-Public Use
  Company Number: US-ROCHE-1329295

PATIENT
  Sex: Female

DRUGS (3)
  1. VALCYTE [Suspect]
     Indication: CYTOMEGALOVIRUS INFECTION
     Dosage: 1 TAB SUN + WED
     Route: 048
  2. VALCYTE [Suspect]
     Indication: CHORIORETINITIS
  3. VALCYTE [Suspect]
     Indication: HIV INFECTION

REACTIONS (1)
  - Death [Fatal]
